FAERS Safety Report 8856550 (Version 2)
Quarter: 2012Q4

REPORT INFORMATION
  Report Type: Spontaneous
  Country: US (occurrence: None)
  Receive Date: 20121018
  Receipt Date: 20121105
  Transmission Date: 20130627
  Serious: Yes (Death, Hospitalization)
  Sender: FDA-Public Use
  Company Number: UTC-024109

PATIENT
  Age: 68 Year
  Sex: Female
  Weight: 64.5 kg

DRUGS (3)
  1. REMODULIN [Suspect]
     Indication: PRIMARY PULMONARY HYPERTENSION
     Dosage: 171.36 ug/kg (0.119 ug/kg,l in 1 min),Intravenous drip
     Route: 041
     Dates: start: 20050225
  2. TRACLEER (BOSENTAN) [Concomitant]
  3. COUMADIN (WARFARIN SODIUM) [Concomitant]

REACTIONS (3)
  - Respiratory arrest [None]
  - Atrial fibrillation [None]
  - Cardiac failure [None]
